FAERS Safety Report 4497389-4 (Version None)
Quarter: 2004Q4

REPORT INFORMATION
  Report Type: 
  Country: None (occurrence: None)
  Receive Date: 20041110
  Receipt Date: 20041102
  Transmission Date: 20050328
  Serious: Yes (Hospitalization)
  Sender: FDA-Public Use
  Company Number: 200420985GDDC

PATIENT
  Age: 61 Year
  Sex: Female

DRUGS (1)
  1. FLAGYL [Suspect]
     Indication: INTESTINAL POLYP
     Route: 048
     Dates: start: 20041006, end: 20041012

REACTIONS (3)
  - ARTHRALGIA [None]
  - BLOOD URIC ACID INCREASED [None]
  - PAIN IN EXTREMITY [None]
